FAERS Safety Report 6338270-5 (Version None)
Quarter: 2009Q3

REPORT INFORMATION
  Report Type: 
  Country: None (occurrence: None)
  Receive Date: 20090902
  Receipt Date: 20090827
  Transmission Date: 20100115
  Serious: No
  Sender: FDA-Public Use
  Company Number: JP-WATSON-2009-06420

PATIENT
  Age: 37 Year
  Sex: Male
  Weight: 61.3 kg

DRUGS (2)
  1. VECURONIUM BROMIDE (WATSON LABORATORIES) [Suspect]
     Indication: GENERAL ANAESTHESIA
     Dosage: UNK
     Route: 065
     Dates: start: 20070401, end: 20070401
  2. PROPOFOL [Suspect]
     Indication: GENERAL ANAESTHESIA
     Dosage: UNK
     Route: 065
     Dates: start: 20070401, end: 20070401

REACTIONS (1)
  - BLOOD CREATINE PHOSPHOKINASE INCREASED [None]
